FAERS Safety Report 5485520-3 (Version None)
Quarter: 2007Q4

REPORT INFORMATION
  Report Type: 
  Country: None (occurrence: None)
  Receive Date: 20071011
  Receipt Date: 20070926
  Transmission Date: 20080405
  Serious: Yes (Hospitalization)
  Sender: FDA-Public Use
  Company Number: 161557ISR

PATIENT
  Age: 69 Year
  Sex: Male

DRUGS (11)
  1. CISPLATIN [Suspect]
     Indication: SMALL CELL LUNG CANCER STAGE UNSPECIFIED
     Dosage: 80 MG, ON DAYS 1 AND 8 OF 21-DAY CYCLE) INTRAVENOUS (NOT OTHERWISE SPECIFIED)
     Route: 042
     Dates: start: 20070807
  2. CISPLATIN [Suspect]
     Indication: SMALL CELL LUNG CANCER STAGE UNSPECIFIED
     Dosage: 80 MG, ON DAYS 1 AND 8 OF 21-DAY CYCLE) INTRAVENOUS (NOT OTHERWISE SPECIFIED)
     Route: 042
     Dates: start: 20070910
  3. IRINOTECAN HCL [Suspect]
     Indication: SMALL CELL LUNG CANCER STAGE UNSPECIFIED
     Dosage: 80 MG (ON DAYS 1 AND 8 OF 21-DAY CYCLE) INTRAVENOUS (NOT OTHERWISE SPECIFIED)
     Route: 042
     Dates: start: 20070807
  4. IRINOTECAN HCL [Suspect]
     Indication: SMALL CELL LUNG CANCER STAGE UNSPECIFIED
     Dosage: 80 MG (ON DAYS 1 AND 8 OF 21-DAY CYCLE) INTRAVENOUS (NOT OTHERWISE SPECIFIED)
     Route: 042
     Dates: start: 20070910
  5. ESOMEPRAZOLE MAGNESIUM [Concomitant]
  6. FUROSEMIDE [Concomitant]
  7. FLAVOXATE HCL [Concomitant]
  8. ALL OTHER THERAPEUTIC PRODUCTS [Concomitant]
  9. FLUTICASONE PROPIONATE W/SALMETEROL [Concomitant]
  10. HEPARIN-FRACTION, SODIUM SALT [Concomitant]
  11. ENOXAPARIN SODIUM [Concomitant]

REACTIONS (1)
  - URINARY TRACT INFECTION [None]
